FAERS Safety Report 7201469-X (Version None)
Quarter: 2010Q4

REPORT INFORMATION
  Report Type: 
  Country: None (occurrence: None)
  Receive Date: 20101229
  Receipt Date: 20101224
  Transmission Date: 20110411
  Serious: Yes (Other)
  Sender: FDA-Public Use
  Company Number: IT-BRISTOL-MYERS SQUIBB COMPANY-15395759

PATIENT
  Age: 51 Year
  Sex: Female

DRUGS (3)
  1. COUMADIN [Suspect]
     Dates: start: 20100101, end: 20100127
  2. TENORMIN [Concomitant]
     Dosage: FORMULATION:100 MG ORAL TABS
     Route: 048
     Dates: start: 20100301, end: 20100927
  3. ALMARYTM [Concomitant]
     Dosage: FORMULATION:100 MG ORAL TABS
     Route: 048
     Dates: start: 20100101, end: 20100927

REACTIONS (2)
  - ARTERIAL THROMBOSIS [None]
  - TRANSIENT ISCHAEMIC ATTACK [None]
